FAERS Safety Report 4931197-2 (Version None)
Quarter: 2006Q1

REPORT INFORMATION
  Report Type: 
  Country: None (occurrence: None)
  Receive Date: 20060227
  Receipt Date: 20060214
  Transmission Date: 20060701
  Serious: Yes (Disabling)
  Sender: FDA-Public Use
  Company Number: 2006022567

PATIENT
  Age: 49 Year
  Sex: Male

DRUGS (2)
  1. TAHOR (ATORVASTATIN) [Suspect]
     Indication: ILL-DEFINED DISORDER
     Dosage: 40  MG (40 MG, 1 IN 1 D)
     Dates: start: 20030425, end: 20060101
  2. EFFEXOR [Concomitant]

REACTIONS (1)
  - MUSCLE RUPTURE [None]
